FAERS Safety Report 5831252-9 (Version None)
Quarter: 2008Q3

REPORT INFORMATION
  Report Type: 
  Country: None (occurrence: None)
  Receive Date: 20080801
  Receipt Date: 20080721
  Transmission Date: 20090109
  Serious: Yes (Other)
  Sender: FDA-Public Use
  Company Number: BR-PFIZER INC-2008061384

PATIENT
  Sex: Female
  Weight: 114 kg

DRUGS (13)
  1. FRONTAL [Suspect]
     Indication: DEPRESSION
     Route: 048
  2. FRONTAL [Suspect]
     Indication: ANXIETY
  3. FRONTAL XR [Suspect]
     Indication: DEPRESSION
     Dates: start: 20080701, end: 20080718
  4. FRONTAL XR [Suspect]
     Indication: ANXIETY
  5. INSULIN [Concomitant]
     Route: 065
  6. METFORMIN HCL [Concomitant]
     Route: 065
  7. GLUCOBAY [Concomitant]
     Route: 065
  8. CRESTOR [Concomitant]
     Route: 065
  9. MONOCORDIL [Concomitant]
     Route: 065
  10. PURAN T4 [Concomitant]
     Route: 065
  11. AAS [Concomitant]
     Route: 065
  12. NOVORAPID [Concomitant]
     Route: 065
  13. CIPRAMIL [Concomitant]
     Route: 065

REACTIONS (3)
  - DRUG INEFFECTIVE [None]
  - EYE HAEMORRHAGE [None]
  - PANIC REACTION [None]
